FAERS Safety Report 12293761 (Version 1)
Quarter: 2016Q2

REPORT INFORMATION
  Report Type: Other
  Country: None (occurrence: GB)
  Receive Date: 20160421
  Receipt Date: 20160421
  Transmission Date: 20160815
  Serious: Yes (Other)
  Sender: FDA-Public Use
  Company Number: GB-POPULATION COUNCIL, INC.-1050857

PATIENT
  Age: 38 Year
  Sex: Female

DRUGS (1)
  1. NORPLANT [Suspect]
     Active Substance: LEVONORGESTREL
     Route: 058

REACTIONS (2)
  - Complication of device removal [Recovered/Resolved]
  - Ulnar nerve injury [Recovering/Resolving]
